FAERS Safety Report 8169258-X (Version None)
Quarter: 2012Q1

REPORT INFORMATION
  Report Type: 
  Country: None (occurrence: None)
  Receive Date: 20120228
  Receipt Date: 20120217
  Transmission Date: 20120608
  Serious: Yes (Disabling, Other)
  Sender: FDA-Public Use
  Company Number: US-ASTRAZENECA-2011SE64102

PATIENT
  Age: 51 Year
  Sex: Female
  Weight: 71.2 kg

DRUGS (4)
  1. CELEXA [Concomitant]
     Indication: AFFECTIVE DISORDER
     Route: 048
  2. XANAX [Concomitant]
     Indication: AFFECTIVE DISORDER
     Route: 048
  3. SEROQUEL XR [Suspect]
     Indication: DEPRESSION
     Route: 048
     Dates: start: 20110201
  4. MOBIC [Concomitant]
     Route: 048

REACTIONS (2)
  - MALIGNANT NEOPLASM OF EYE [None]
  - ACCIDENT AT WORK [None]
